FAERS Safety Report 8736845 (Version 2)
Quarter: 2012Q4

REPORT INFORMATION
  Report Type: Spontaneous
  Country: US (occurrence: None)
  Receive Date: 20120805
  Receipt Date: 20120816
  Transmission Date: 20130627
  Serious: Yes (Hospitalization)
  Sender: FDA-Public Use
  Company Number: JPI-P-023077

PATIENT
  Age: 36 Year
  Sex: Female
  Weight: 65.77 kg

DRUGS (2)
  1. XYREM [Suspect]
     Indication: NARCOLEPSY
     Dosage: SEE IMAGE
     Dates: start: 20110412, end: 2011
  2. MULTIPLE UNSPECIFIED MEDICATIONS [Concomitant]

REACTIONS (31)
  - POOR QUALITY SLEEP [None]
  - HYPOAESTHESIA [None]
  - MUSCULAR WEAKNESS [None]
  - PAIN IN EXTREMITY [None]
  - SLEEP TALKING [None]
  - MALAISE [None]
  - NAUSEA [None]
  - VOMITING [None]
  - GAIT DISTURBANCE [None]
  - Dysstasia [None]
  - LETHARGY [None]
  - ASTHENIA [None]
  - DIZZINESS [None]
  - VERTIGO [None]
  - URINARY TRACT INFECTION [None]
  - RETCHING [None]
  - THINKING ABNORMAL [None]
  - FATIGUE [None]
  - MIDDLE INSOMNIA [None]
  - PARAESTHESIA [None]
  - MUSCULOSKELETAL STIFFNESS [None]
  - INCISION SITE INFECTION [None]
  - IMPAIRED HEALING [None]
  - INTESTINAL OBSTRUCTION [None]
  - DYSPNOEA [None]
  - AMNESIA [None]
  - MUSCLE SPASMS [None]
  - CHEST DISCOMFORT [None]
  - COLONIC PSEUDO-OBSTRUCTION [None]
  - SLEEP TERROR [None]
  - SKIN DISCOLOURATION [None]
